FAERS Safety Report 6998526-X (Version None)
Quarter: 2010Q3

REPORT INFORMATION
  Report Type: 
  Country: None (occurrence: None)
  Receive Date: 20100920
  Receipt Date: 20090721
  Transmission Date: 20110219
  Serious: Yes (Other)
  Sender: FDA-Public Use
  Company Number: US-ASTRAZENECA-2007UW05889

PATIENT
  Sex: Male

DRUGS (4)
  1. SEROQUEL [Suspect]
     Dosage: 300 MG 5 QD
     Route: 048
     Dates: start: 20050101
  2. PROTONIX [Concomitant]
     Dates: start: 20050101
  3. TRAZODONE HCL [Concomitant]
     Dosage: 100 MG 3-4 QD
     Dates: start: 20050101
  4. SONATA [Concomitant]
     Dates: start: 20050101

REACTIONS (3)
  - DIABETES MELLITUS [None]
  - KETOACIDOSIS [None]
  - PANCREATITIS [None]
